FAERS Safety Report 23709782 (Version 1)
Quarter: 2024Q2

REPORT INFORMATION
  Report Type: Report from Study
  Country: PR (occurrence: PR)
  Receive Date: 20240405
  Receipt Date: 20240405
  Transmission Date: 20240716
  Serious: Yes (Other)
  Sender: FDA-Public Use
  Company Number: PR-ABBVIE-5704047

PATIENT
  Sex: Male
  Weight: 68.038 kg

DRUGS (2)
  1. HUMIRA [Suspect]
     Active Substance: ADALIMUMAB
     Indication: Ankylosing spondylitis
     Dosage: FORM STRENGTH: 40 MILLIGRAM
     Route: 058
     Dates: start: 20220214
  2. HUMIRA [Suspect]
     Active Substance: ADALIMUMAB
     Indication: Crohn^s disease

REACTIONS (4)
  - Weight increased [Unknown]
  - Cholelithiasis [Unknown]
  - Drug ineffective [Unknown]
  - Gastric bypass [Recovered/Resolved]

NARRATIVE: CASE EVENT DATE: 20221001
